FAERS Safety Report 5175604-1 (Version None)
Quarter: 2006Q4

REPORT INFORMATION
  Report Type: 
  Country: None (occurrence: None)
  Receive Date: 20061212
  Receipt Date: 20061212
  Transmission Date: 20070319
  Serious: No
  Sender: FDA-Public Use
  Company Number: None

PATIENT

DRUGS (2)
  1. TPN [Suspect]
  2. HOSPIRA PLUM A+ [Suspect]

REACTIONS (5)
  - DEVICE FAILURE [None]
  - HEART RATE INCREASED [None]
  - INCORRECT DRUG ADMINISTRATION RATE [None]
  - MEDICATION ERROR [None]
  - OVERDOSE [None]
